FAERS Safety Report 13754142 (Version 2)
Quarter: 2017Q3

REPORT INFORMATION
  Report Type: Spontaneous
  Country: JP (occurrence: JP)
  Receive Date: 20170714
  Receipt Date: 20170724
  Transmission Date: 20171127
  Serious: No
  Sender: FDA-Public Use
  Company Number: JP-ASTRAZENECA-2017SE71734

PATIENT
  Sex: Female

DRUGS (2)
  1. PULMICORT TURBUHALER [Suspect]
     Active Substance: BUDESONIDE
     Indication: ASTHMA
     Route: 055
     Dates: start: 2005, end: 201704
  2. SYMBICORT [Suspect]
     Active Substance: BUDESONIDE\FORMOTEROL FUMARATE DIHYDRATE
     Indication: ASTHMA
     Dosage: 1 DF, TWO TIMES A DAY
     Route: 055
     Dates: start: 201704

REACTIONS (11)
  - Device malfunction [Unknown]
  - Bone density decreased [Unknown]
  - Weight decreased [Unknown]
  - Cough [Unknown]
  - Insomnia [Unknown]
  - Compression fracture [Unknown]
  - Circumstance or information capable of leading to medication error [Unknown]
  - Liver disorder [Unknown]
  - Productive cough [Unknown]
  - Rhinorrhoea [Unknown]
  - Cough [Unknown]

NARRATIVE: CASE EVENT DATE: 201704
